FAERS Safety Report 10374135 (Version 1)
Quarter: 2014Q3

REPORT INFORMATION
  Report Type: Spontaneous
  Country: GB (occurrence: GB)
  Receive Date: 20140811
  Receipt Date: 20140811
  Transmission Date: 20150326
  Serious: Yes (Disabling)
  Sender: FDA-Public Use
  Company Number: PHHY2014GB093995

PATIENT
  Age: 64 Year
  Sex: Female

DRUGS (5)
  1. ATORVASTATIN [Suspect]
     Active Substance: ATORVASTATIN
     Indication: CHEST PAIN
     Dosage: 20 MG, QD
     Route: 048
     Dates: start: 20140711
  2. ASPIRIN. [Concomitant]
     Active Substance: ASPIRIN
     Dosage: 75 MG, QD
  3. GTN [Concomitant]
     Active Substance: NITROGLYCERIN
     Dosage: 400 MG, UNK
  4. BISOPROLOL [Concomitant]
     Active Substance: BISOPROLOL
     Dosage: 2.5 MG, QD
  5. RAMIPRIL. [Concomitant]
     Active Substance: RAMIPRIL
     Dosage: 5 MG, QD

REACTIONS (4)
  - Myopathy [Unknown]
  - Limb discomfort [Unknown]
  - Muscular weakness [Unknown]
  - Pain in extremity [Unknown]
